FAERS Safety Report 19230673 (Version 1)
Quarter: 2021Q2

REPORT INFORMATION
  Report Type: Spontaneous
  Country: US (occurrence: US)
  Receive Date: 20210507
  Receipt Date: 20210507
  Transmission Date: 20210717
  Serious: No
  Sender: FDA-Public Use
  Company Number: None

PATIENT
  Age: 46 Year
  Sex: Male

DRUGS (1)
  1. CABOMETYX [Suspect]
     Active Substance: CABOZANTINIB S-MALATE
     Indication: RENAL CELL CARCINOMA
     Route: 048
     Dates: start: 20210430

REACTIONS (4)
  - Fatigue [None]
  - Haemorrhage urinary tract [None]
  - Dry throat [None]
  - Dysphonia [None]

NARRATIVE: CASE EVENT DATE: 20210507
